FAERS Safety Report 6199355-X (Version None)
Quarter: 2009Q2

REPORT INFORMATION
  Report Type: 
  Country: None (occurrence: None)
  Receive Date: 20090520
  Receipt Date: 20090520
  Transmission Date: 20091009
  Serious: Yes (Life-Threatening, Disabling)
  Sender: FDA-Public Use
  Company Number: None

PATIENT
  Age: 9 Year
  Sex: Female
  Weight: 27.2158 kg

DRUGS (1)
  1. HALDOL [Suspect]
     Indication: ANXIETY
     Dosage: ONCE IM
     Route: 030
     Dates: start: 20090421, end: 20090421

REACTIONS (5)
  - APHASIA [None]
  - BRUXISM [None]
  - DYSPHAGIA [None]
  - DYSPNOEA [None]
  - TREMOR [None]
